FAERS Safety Report 5874086-1 (Version None)
Quarter: 2008Q3

REPORT INFORMATION
  Report Type: 
  Country: None (occurrence: None)
  Receive Date: 20080908
  Receipt Date: 20080903
  Transmission Date: 20090109
  Serious: Yes (Other)
  Sender: FDA-Public Use
  Company Number: US-ASTRAZENECA-2008UW16788

PATIENT
  Age: 61 Year
  Sex: Female
  Weight: 90.7 kg

DRUGS (9)
  1. ARIMIDEX [Suspect]
     Indication: BREAST CANCER FEMALE
     Route: 048
     Dates: start: 20050101
  2. ASPIRIN [Concomitant]
     Dosage: 81 MG
  3. FOSAMAX [Concomitant]
  4. ELAVIL [Concomitant]
  5. CALCIUM [Concomitant]
  6. LEXAPRO [Concomitant]
  7. PROPRANOLOL [Concomitant]
  8. ZOCOR [Concomitant]
  9. MULTI-VITAMINS [Concomitant]

REACTIONS (6)
  - ARTHROPATHY [None]
  - CARPAL TUNNEL SYNDROME [None]
  - INSOMNIA [None]
  - TENDON DISORDER [None]
  - TENDONITIS [None]
  - TRIGGER FINGER [None]
